FAERS Safety Report 21239026 (Version 3)
Quarter: 2022Q3

REPORT INFORMATION
  Report Type: Spontaneous
  Country: ES (occurrence: ES)
  Receive Date: 20220822
  Receipt Date: 20220908
  Transmission Date: 20221027
  Serious: Yes (Disabling)
  Sender: FDA-Public Use
  Company Number: None

PATIENT
  Age: 17 Year
  Sex: Male

DRUGS (6)
  1. SERTRALINE [Suspect]
     Active Substance: SERTRALINE HYDROCHLORIDE
     Indication: Product used for unknown indication
     Dosage: UNK
     Route: 065
     Dates: start: 2016
  2. PALIPERIDONE PALMITATE [Suspect]
     Active Substance: PALIPERIDONE PALMITATE
     Indication: Autism spectrum disorder
     Dosage: 75 MG, MONTHLY
     Route: 030
     Dates: end: 20150528
  3. PALIPERIDONE PALMITATE [Suspect]
     Active Substance: PALIPERIDONE PALMITATE
     Dosage: UNK
  4. SEROQUEL [Suspect]
     Active Substance: QUETIAPINE FUMARATE
     Indication: Product used for unknown indication
     Dosage: UNK
     Route: 065
     Dates: start: 2016
  5. RISPERDAL [Suspect]
     Active Substance: RISPERIDONE
     Indication: Product used for unknown indication
     Dosage: 1.5 MG, //2016
     Route: 048
     Dates: start: 2016
  6. RISPERDAL [Suspect]
     Active Substance: RISPERIDONE
     Dosage: UNK

REACTIONS (27)
  - Disability [Unknown]
  - Muscle contractions involuntary [Unknown]
  - Nervous system disorder [Unknown]
  - Depressed mood [Unknown]
  - Muscle rigidity [Unknown]
  - Gynaecomastia [Unknown]
  - Bone pain [Unknown]
  - Fear [Unknown]
  - Dyskinesia [Unknown]
  - Dizziness [Unknown]
  - Sleep disorder [Unknown]
  - Anhedonia [Unknown]
  - Stereotypy [Unknown]
  - Cognitive disorder [Unknown]
  - Agitation [Unknown]
  - Abnormal behaviour [Unknown]
  - Impaired self-care [Unknown]
  - Paranoia [Unknown]
  - Irritability [Unknown]
  - Sedation [Unknown]
  - Constipation [Unknown]
  - Myalgia [Unknown]
  - Fatigue [Unknown]
  - Boredom [Unknown]
  - Somnolence [Unknown]
  - Language disorder [Unknown]
  - Loss of personal independence in daily activities [Unknown]
